FAERS Safety Report 7530929-7 (Version None)
Quarter: 2011Q2

REPORT INFORMATION
  Report Type: 
  Country: None (occurrence: None)
  Receive Date: 20110608
  Receipt Date: 20110526
  Transmission Date: 20111010
  Serious: Yes (Death)
  Sender: FDA-Public Use
  Company Number: FR-ELI_LILLY_AND_COMPANY-FR201105007939

PATIENT
  Sex: Female

DRUGS (3)
  1. ZYPREXA [Suspect]
     Indication: PARANOIA
     Dosage: UNK, UNKNOWN
     Route: 048
  2. HYDROXYZINE [Concomitant]
     Indication: PARANOIA
     Route: 048
  3. CYMBALTA [Suspect]
     Indication: PARANOIA
     Dosage: UNK, UNKNOWN
     Route: 048

REACTIONS (3)
  - COMPLETED SUICIDE [None]
  - OFF LABEL USE [None]
  - INTENTIONAL OVERDOSE [None]
